FAERS Safety Report 4842136-7 (Version None)
Quarter: 2005Q4

REPORT INFORMATION
  Report Type: 
  Country: None (occurrence: None)
  Receive Date: 20051130
  Receipt Date: 20050726
  Transmission Date: 20060501
  Serious: Yes (Hospitalization)
  Sender: FDA-Public Use
  Company Number: US-MERCK-0507USA04235

PATIENT
  Age: 53 Year
  Sex: Female
  Weight: 77 kg

DRUGS (8)
  1. VIOXX [Suspect]
     Indication: MYALGIA
     Route: 048
     Dates: start: 20021203
  2. VIOXX [Suspect]
     Indication: ARTHRITIS
     Route: 048
     Dates: start: 20021203
  3. ZOLOFT [Concomitant]
     Route: 048
  4. POTASSIUM CHLORIDE [Concomitant]
     Route: 065
     Dates: start: 20021203
  5. LASIX [Concomitant]
     Route: 048
     Dates: start: 20021203
  6. WARFARIN [Concomitant]
     Route: 065
  7. PROPOXYPHENE HYDROCHLORIDE [Concomitant]
     Route: 065
  8. PREVACID [Concomitant]
     Route: 065

REACTIONS (13)
  - ATRIAL FIBRILLATION [None]
  - BUNDLE BRANCH BLOCK RIGHT [None]
  - CARDIAC DISORDER [None]
  - CARDIAC FAILURE CONGESTIVE [None]
  - CARDIAC VALVE REPLACEMENT COMPLICATION [None]
  - CARDIOGENIC SHOCK [None]
  - COGNITIVE DISORDER [None]
  - HEART RATE INCREASED [None]
  - MEMORY IMPAIRMENT [None]
  - NEUROPATHY [None]
  - PAIN IN EXTREMITY [None]
  - POST PROCEDURAL COMPLICATION [None]
  - THROMBOSIS [None]
